FAERS Safety Report 5043699-1 (Version None)
Quarter: 2006Q2

REPORT INFORMATION
  Report Type: 
  Country: None (occurrence: None)
  Receive Date: 20060628
  Receipt Date: 20060619
  Transmission Date: 20061013
  Serious: Yes (Other)
  Sender: FDA-Public Use
  Company Number: 2006-05-1999

PATIENT
  Age: 74 Year
  Sex: Male
  Weight: 77.1115 kg

DRUGS (2)
  1. PEG-INTRON [Suspect]
     Indication: HEPATITIS C
     Dosage: ^.4-.3 ML^/WK
     Dates: start: 20040917, end: 20051020
  2. RIBAVIRIN [Suspect]
     Indication: HEPATITIS C
     Dosage: 800-400 MG QD ORAL
     Route: 048
     Dates: start: 20040917, end: 20051020

REACTIONS (1)
  - PULMONARY FIBROSIS [None]
